FAERS Safety Report 16757293 (Version 1)
Quarter: 2019Q3

REPORT INFORMATION
  Report Type: Spontaneous
  Country: US (occurrence: US)
  Receive Date: 20190829
  Receipt Date: 20190829
  Transmission Date: 20191005
  Serious: No
  Sender: FDA-Public Use
  Company Number: US-TEVA-2019-US-1100940

PATIENT
  Sex: Male

DRUGS (1)
  1. DEXMETHYLPHENIDATE HYDROCHLORIDE. [Suspect]
     Active Substance: DEXMETHYLPHENIDATE HYDROCHLORIDE
     Indication: ATTENTION DEFICIT/HYPERACTIVITY DISORDER
     Route: 065

REACTIONS (7)
  - Therapeutic product effect incomplete [Unknown]
  - Formication [Recovered/Resolved]
  - Product substitution issue [Unknown]
  - Tremor [Unknown]
  - Paranoia [Recovered/Resolved]
  - Incorrect dose administered by product [Unknown]
  - Hyperhidrosis [Recovered/Resolved]
